FAERS Safety Report 9893812 (Version 1)
Quarter: 2014Q1

REPORT INFORMATION
  Report Type: Spontaneous
  Country: US (occurrence: US)
  Receive Date: 20140213
  Receipt Date: 20140213
  Transmission Date: 20141002
  Serious: No
  Sender: FDA-Public Use
  Company Number: US-B.I. PHARMACEUTICALS,INC./RIDGEFIELD-2014-BI-06229BP

PATIENT
  Age: 85 Year
  Sex: Male
  Weight: 67 kg

DRUGS (7)
  1. SPIRIVA [Suspect]
     Indication: CHRONIC OBSTRUCTIVE PULMONARY DISEASE
     Dosage: 18 MCG
     Route: 055
     Dates: start: 2008
  2. SPIRIVA [Suspect]
     Dosage: 18 MCG
     Route: 048
     Dates: start: 20140209, end: 20140209
  3. DIGOXIN [Concomitant]
     Dosage: 0.125 MG
     Route: 048
  4. WARFARIN [Concomitant]
     Indication: RESTLESS LEGS SYNDROME
     Dosage: 3 MG
     Route: 048
  5. DOXEPIN [Concomitant]
     Indication: RESTLESS LEGS SYNDROME
     Dosage: 10 MG
     Route: 048
  6. OMEPRAZOLE [Concomitant]
     Indication: DYSPEPSIA
     Dosage: 20 MG
     Route: 048
  7. ROPINIROLE [Concomitant]
     Indication: RESTLESS LEGS SYNDROME
     Dosage: 0.5 MG
     Route: 048

REACTIONS (2)
  - Sleep apnoea syndrome [Not Recovered/Not Resolved]
  - Incorrect route of drug administration [Recovered/Resolved]
